FAERS Safety Report 11371764 (Version 1)
Quarter: 2015Q3

REPORT INFORMATION
  Report Type: Spontaneous
  Country: IL (occurrence: IL)
  Receive Date: 20150812
  Receipt Date: 20150812
  Transmission Date: 20151125
  Serious: Yes (Hospitalization)
  Sender: FDA-Public Use
  Company Number: IL-BAXTER-2015BAX043074

PATIENT
  Age: 27 Year
  Sex: Male

DRUGS (11)
  1. ADDAMEL [Suspect]
     Active Substance: ELECTROLYTES NOS\MINERALS\SORBITOL
     Indication: PARENTERAL NUTRITION
     Route: 042
     Dates: start: 20150706
  2. STERILE WATER [Suspect]
     Active Substance: WATER
     Indication: PARENTERAL NUTRITION
     Route: 042
     Dates: start: 20150706
  3. SYNTHAMIN [Suspect]
     Active Substance: AMINO ACIDS
     Indication: PARENTERAL NUTRITION
     Route: 042
     Dates: start: 20150706
  4. CALCIUM GLUCONATE. [Suspect]
     Active Substance: CALCIUM GLUCONATE
     Indication: PARENTERAL NUTRITION
     Route: 042
     Dates: start: 20150706
  5. POTASSIUM CHLORIDE. [Suspect]
     Active Substance: POTASSIUM CHLORIDE
     Indication: PARENTERAL NUTRITION
     Route: 042
     Dates: start: 20150706
  6. CERNEVIT [Suspect]
     Active Substance: VITAMINS
     Indication: PARENTERAL NUTRITION
     Route: 042
     Dates: start: 20150706
  7. SODIUM GLYCEROPHOSPHATE [Suspect]
     Active Substance: SODIUM GLYCEROPHOSPHATE
     Indication: PARENTERAL NUTRITION
     Route: 042
     Dates: start: 20150706
  8. CLINOLEIC  20% [Suspect]
     Active Substance: OLIVE OIL\SOYBEAN OIL
     Indication: PARENTERAL NUTRITION
     Route: 042
     Dates: start: 20150706
  9. MAGNESIUM SULFATE. [Suspect]
     Active Substance: MAGNESIUM SULFATE
     Indication: PARENTERAL NUTRITION
     Route: 042
     Dates: start: 20150706
  10. SODIUM CHLORIDE. [Suspect]
     Active Substance: SODIUM CHLORIDE
     Indication: PARENTERAL NUTRITION
     Route: 042
     Dates: start: 20150706
  11. DEXTROSE 50% USP [Suspect]
     Active Substance: DEXTROSE
     Indication: PARENTERAL NUTRITION
     Route: 042
     Dates: start: 20150706

REACTIONS (1)
  - Device related sepsis [Unknown]
